FAERS Safety Report 11393478 (Version 1)
Quarter: 2015Q3

REPORT INFORMATION
  Report Type: Spontaneous
  Country: BR (occurrence: BR)
  Receive Date: 20150818
  Receipt Date: 20150818
  Transmission Date: 20151125
  Serious: Yes (Other)
  Sender: FDA-Public Use
  Company Number: BR-AMGEN-BRASP2015081351

PATIENT
  Sex: Male

DRUGS (1)
  1. ENBREL [Suspect]
     Active Substance: ETANERCEPT
     Indication: PRODUCT USED FOR UNKNOWN INDICATION
     Dosage: UNK
     Route: 065

REACTIONS (8)
  - Arthritis reactive [Unknown]
  - Joint swelling [Unknown]
  - Drug effect incomplete [Unknown]
  - Spondylitis [Unknown]
  - Gastrointestinal infection [Unknown]
  - Dysuria [Unknown]
  - Back pain [Unknown]
  - Pain [Unknown]
